FAERS Safety Report 6120444-X (Version None)
Quarter: 2009Q1

REPORT INFORMATION
  Report Type: 
  Country: None (occurrence: None)
  Receive Date: 20090317
  Receipt Date: 20090312
  Transmission Date: 20090719
  Serious: Yes (Death)
  Sender: FDA-Public Use
  Company Number: NL-JNJFOC-20090303373

PATIENT
  Age: 67 Year
  Sex: Female

DRUGS (7)
  1. TRISPORAL [Suspect]
     Indication: ONYCHOMYCOSIS
     Dosage: PULSE THERAPY
     Route: 065
  2. SIMVASTATIN [Suspect]
     Indication: DRUG USE FOR UNKNOWN INDICATION
     Route: 065
  3. CIPROFIBRATE [Suspect]
     Indication: HYPERLIPIDAEMIA
     Route: 065
  4. PSYLLIUM SEED [Concomitant]
     Route: 065
  5. CAPTOPRIL [Concomitant]
     Route: 065
  6. CHLORTHALIDONE [Concomitant]
     Route: 065
  7. BECLOMETASONE [Concomitant]
     Route: 065

REACTIONS (1)
  - PANCREATITIS NECROTISING [None]
